FAERS Safety Report 19584471 (Version 1)
Quarter: 2021Q3

REPORT INFORMATION
  Report Type: Spontaneous
  Country: JP (occurrence: JP)
  Receive Date: 20210720
  Receipt Date: 20210720
  Transmission Date: 20211014
  Serious: Yes (Hospitalization, Other)
  Sender: FDA-Public Use
  Company Number: JP-TEVA-2021-JP-1935222

PATIENT
  Age: 62 Year
  Sex: Female

DRUGS (2)
  1. BENDAMUSTINE HYDROCHLORIDE. [Suspect]
     Active Substance: BENDAMUSTINE HYDROCHLORIDE
     Indication: FOLLICULAR LYMPHOMA
     Dosage: (6 COURSE)
     Route: 042
  2. RITUXIMAB. [Suspect]
     Active Substance: RITUXIMAB
     Indication: FOLLICULAR LYMPHOMA
     Dosage: (6 COURSE)
     Route: 065

REACTIONS (6)
  - Carotid artery stenosis [Recovered/Resolved]
  - Varicella zoster virus infection [Recovered/Resolved]
  - Central nervous system viral infection [Recovered/Resolved]
  - Ischaemic stroke [Recovered/Resolved]
  - Product use issue [Unknown]
  - Herpes zoster [Unknown]
